FAERS Safety Report 25115454 (Version 1)
Quarter: 2025Q1

REPORT INFORMATION
  Report Type: Spontaneous
  Country: US (occurrence: US)
  Receive Date: 20250324
  Receipt Date: 20250324
  Transmission Date: 20250409
  Serious: No
  Sender: SANOFI AVENTIS
  Company Number: US-SA-2024SA377935

PATIENT
  Age: 69 Year
  Sex: Female
  Weight: 63.64 kg

DRUGS (10)
  1. CERDELGA [Suspect]
     Active Substance: ELIGLUSTAT
     Indication: Gaucher^s disease
     Dosage: 84 MG, BID
     Route: 048
     Dates: start: 20220311
  2. LEVOTHYROXINE SODIUM [Concomitant]
     Active Substance: LEVOTHYROXINE SODIUM
  3. ASPIRIN [Concomitant]
     Active Substance: ASPIRIN
  4. EPIPEN [Concomitant]
     Active Substance: EPINEPHRINE
  5. CEREZYME [Concomitant]
     Active Substance: IMIGLUCERASE
  6. CEPHALEXIN [Concomitant]
     Active Substance: CEPHALEXIN
  7. TYLENOL [Concomitant]
     Active Substance: ACETAMINOPHEN
  8. DIETARY SUPPLEMENT\PROBIOTICS [Concomitant]
     Active Substance: DIETARY SUPPLEMENT\PROBIOTICS NOS
  9. IBUPROFEN [Concomitant]
     Active Substance: IBUPROFEN
  10. CALCIUM CITRATE\CHOLECALCIFEROL [Concomitant]
     Active Substance: CALCIUM CITRATE\CHOLECALCIFEROL

REACTIONS (1)
  - Eye pruritus [Unknown]
